FAERS Safety Report 7776630-6 (Version None)
Quarter: 2011Q3

REPORT INFORMATION
  Report Type: 
  Country: None (occurrence: None)
  Receive Date: 20110926
  Receipt Date: 20110912
  Transmission Date: 20111222
  Serious: Yes (Death, Hospitalization)
  Sender: FDA-Public Use
  Company Number: US-RANBAXY-2011US-48100

PATIENT
  Age: 77 Year
  Sex: Male

DRUGS (2)
  1. METFORMIN HYDROCHLORIDE [Suspect]
     Indication: PRODUCT USED FOR UNKNOWN INDICATION
     Dosage: 50 TABLETS OF 1000MG
     Route: 048
  2. ACETAMINOPHEN WITH PROPOXYPHENE HCL TAB [Suspect]
     Indication: PRODUCT USED FOR UNKNOWN INDICATION
     Dosage: UNKNOWN NUMBER OF TABLETS
     Route: 048

REACTIONS (1)
  - COMPLETED SUICIDE [None]
